FAERS Safety Report 5674909-5 (Version None)
Quarter: 2008Q1

REPORT INFORMATION
  Report Type: 
  Country: None (occurrence: None)
  Receive Date: 20080320
  Receipt Date: 20080310
  Transmission Date: 20080703
  Serious: Yes (Hospitalization)
  Sender: FDA-Public Use
  Company Number: IT-ROCHE-552377

PATIENT
  Age: 8 Year
  Sex: Male

DRUGS (3)
  1. ROCEPHIN [Suspect]
     Dosage: FORM REPORTED AS VIAL
     Route: 042
     Dates: start: 20080206, end: 20080206
  2. CEFIXORAL [Suspect]
     Dosage: FORM REPORTED AS ORAL SOLUTION
     Route: 048
     Dates: start: 20080204, end: 20080305
  3. NUREFLEX [Concomitant]
     Dosage: FORM REPORTED AS ORAL SOLUTION DOSAGE REGIMEN 11 ML X UNK
     Route: 048
     Dates: start: 20080206, end: 20080206

REACTIONS (2)
  - RASH [None]
  - STEVENS-JOHNSON SYNDROME [None]
